FAERS Safety Report 12958136 (Version 2)
Quarter: 2017Q1

REPORT INFORMATION
  Report Type: Spontaneous
  Country: US (occurrence: US)
  Receive Date: 20161120
  Receipt Date: 20170110
  Transmission Date: 20170428
  Serious: No
  Sender: FDA-Public Use
  Company Number: US-TAIHO ONCOLOGY INC-EU-2016-02364

PATIENT
  Age: 56 Year
  Sex: Female

DRUGS (18)
  1. REFRESH [Concomitant]
     Active Substance: UNSPECIFIED INGREDIENT
  2. PROTONIX [Concomitant]
     Active Substance: PANTOPRAZOLE SODIUM
     Dosage: NI
  3. XANAX [Concomitant]
     Active Substance: ALPRAZOLAM
     Dosage: NI
  4. OXYCODONE [Concomitant]
     Active Substance: OXYCODONE
     Dosage: NI
  5. DEXAMETHASONE. [Concomitant]
     Active Substance: DEXAMETHASONE
     Dosage: NI
  6. PEPCID [Concomitant]
     Active Substance: FAMOTIDINE
     Dosage: NI
  7. SENNALAX [Concomitant]
     Dosage: NI
  8. GAS-X [Concomitant]
     Active Substance: DIMETHICONE
     Dosage: NI
  9. SYSTANE (HYPROMELLOSE 2910 (4000 MPA.S)) [Concomitant]
     Active Substance: HYPROMELLOSE 2910 (4000 MPA.S)
     Dosage: NI
  10. MIRALAX [Concomitant]
     Active Substance: POLYETHYLENE GLYCOL 3350
     Dosage: NI
  11. TYLENOL [Concomitant]
     Active Substance: ACETAMINOPHEN
     Dosage: NI
  12. LONSURF [Suspect]
     Active Substance: TIPIRACIL HYDROCHLORIDE\TRIFLURIDINE
     Indication: COLON CANCER
     Route: 048
     Dates: start: 20160806
  13. COLACE [Concomitant]
     Active Substance: DOCUSATE SODIUM
     Dosage: NI
  14. PERCOCET [Concomitant]
     Active Substance: ACETAMINOPHEN\OXYCODONE HYDROCHLORIDE
     Dosage: NI
  15. BETAMETHASONE DIPROPIONATE/CLOTRIMAZOLE [Concomitant]
  16. MAGNESIUM [Concomitant]
     Active Substance: MAGNESIUM
     Dosage: NI
  17. ZOFRAN [Concomitant]
     Active Substance: ONDANSETRON HYDROCHLORIDE
     Dosage: NI
  18. ZADITOR [Concomitant]
     Active Substance: KETOTIFEN FUMARATE
     Dosage: NI

REACTIONS (4)
  - Fatigue [Not Recovered/Not Resolved]
  - Inappropriate schedule of drug administration [Unknown]
  - Confusional state [Unknown]
  - Nausea [Unknown]

NARRATIVE: CASE EVENT DATE: 201608
